FAERS Safety Report 10034592 (Version 5)
Quarter: 2015Q2

REPORT INFORMATION
  Report Type: Report from Study
  Country: CA (occurrence: CA)
  Receive Date: 20140325
  Receipt Date: 20150626
  Transmission Date: 20150821
  Serious: Yes (Hospitalization)
  Sender: FDA-Public Use
  Company Number: CA-UCBSA-114722

PATIENT
  Age: 78 Year
  Sex: Female
  Weight: 88.6 kg

DRUGS (10)
  1. ATIVAN [Concomitant]
     Active Substance: LORAZEPAM
     Indication: ANXIETY
     Dosage: 1 MG AT BED TIME
     Route: 048
     Dates: start: 20110721
  2. PREDNISONE. [Concomitant]
     Active Substance: PREDNISONE
     Indication: RHEUMATOID ARTHRITIS
     Dosage: 5 MG, 2X/DAY (BID)
     Route: 048
     Dates: start: 20130719
  3. MAVIK [Concomitant]
     Active Substance: TRANDOLAPRIL
     Indication: HYPERTENSION
     Dosage: 1 MG, ONCE DAILY (QD)
     Route: 048
     Dates: start: 2011
  4. SEROQUEL [Concomitant]
     Active Substance: QUETIAPINE FUMARATE
     Indication: DEPRESSION
     Dosage: 150 MG, ONCE DAILY (QD)
     Route: 048
     Dates: start: 2012
  5. ACETAMINOPHEN. [Concomitant]
     Active Substance: ACETAMINOPHEN
     Indication: PAIN
     Dosage: 975 MG, ONCE DAILY (QD), AT BED TIMES
     Dates: start: 2014
  6. ATIVAN [Concomitant]
     Active Substance: LORAZEPAM
     Indication: SLEEP DISORDER
  7. CERTOLIZUMAB PEGOL RA [Suspect]
     Active Substance: CERTOLIZUMAB PEGOL
     Indication: RHEUMATOID ARTHRITIS
     Route: 058
     Dates: start: 20120912
  8. MONOCOR [Concomitant]
     Active Substance: BISOPROLOL FUMARATE
     Indication: UNEVALUABLE EVENT
     Dosage: 10 MG, ONCE DAILY (QD)
     Route: 048
     Dates: start: 1997
  9. PREDNISONE. [Concomitant]
     Active Substance: PREDNISONE
     Dosage: 10 MG, ONCE DAILY (QD)
     Route: 048
     Dates: start: 20140506
  10. EFFEXOR XR [Concomitant]
     Active Substance: VENLAFAXINE HYDROCHLORIDE
     Indication: DEPRESSION
     Dosage: 112.5 MG, ONCE DAILY (QD)
     Route: 048
     Dates: start: 20130828

REACTIONS (1)
  - Depression [Unknown]

NARRATIVE: CASE EVENT DATE: 20140308
